FAERS Safety Report 25764554 (Version 1)
Quarter: 2025Q3

REPORT INFORMATION
  Report Type: Spontaneous
  Country: US (occurrence: US)
  Receive Date: 20250905
  Receipt Date: 20250905
  Transmission Date: 20251020
  Serious: No
  Sender: DOMPE FARMACEUTICI
  Company Number: US-FARMAPROD-202502-0392

PATIENT
  Age: 76 Year
  Sex: Male
  Weight: 92.53 kg

DRUGS (17)
  1. OXERVATE [Suspect]
     Active Substance: CENEGERMIN-BKBJ
     Indication: Neurotrophic keratopathy
     Route: 047
     Dates: start: 20250205
  2. OXERVATE [Suspect]
     Active Substance: CENEGERMIN-BKBJ
  3. SIMVASTATIN [Concomitant]
     Active Substance: SIMVASTATIN
  4. ZYRTEC [Concomitant]
     Active Substance: CETIRIZINE HYDROCHLORIDE
  5. CETIRIZINE HCL [Concomitant]
     Active Substance: CETIRIZINE HYDROCHLORIDE
  6. NITROGLYCERIN [Concomitant]
     Active Substance: NITROGLYCERIN
  7. ASPIRIN [Concomitant]
     Active Substance: ASPIRIN
  8. EZETIMIBE [Concomitant]
     Active Substance: EZETIMIBE
  9. INSULIN ASPART [Concomitant]
     Active Substance: INSULIN ASPART
  10. FINASTERIDE [Concomitant]
     Active Substance: FINASTERIDE
  11. ASPIRIN [Concomitant]
     Active Substance: ASPIRIN
  12. CILOSTAZOL [Concomitant]
     Active Substance: CILOSTAZOL
  13. MIDODRINE HYDROCHLORIDE [Concomitant]
     Active Substance: MIDODRINE HYDROCHLORIDE
  14. DIPHENHYDRAMINE HYDROCHLORIDE [Concomitant]
     Active Substance: DIPHENHYDRAMINE HYDROCHLORIDE
  15. GABAPENTIN [Concomitant]
     Active Substance: GABAPENTIN
  16. METOPROLOL SUCCINATE [Concomitant]
     Active Substance: METOPROLOL SUCCINATE
  17. OMEPRAZOLE [Concomitant]
     Active Substance: OMEPRAZOLE

REACTIONS (3)
  - Eye irritation [Unknown]
  - Eye pain [Unknown]
  - Eye irritation [Unknown]

NARRATIVE: CASE EVENT DATE: 20250205
